FAERS Safety Report 5084682-X (Version None)
Quarter: 2006Q3

REPORT INFORMATION
  Report Type: 
  Country: None (occurrence: None)
  Receive Date: 20060818
  Receipt Date: 20060818
  Transmission Date: 20061208
  Serious: No
  Sender: FDA-Public Use
  Company Number: None

PATIENT
  Sex: Male
  Weight: 80.7856 kg

DRUGS (8)
  1. MOMETASONE FUROATE [Suspect]
     Indication: ASTHMA
     Dosage: 220 MCG  BID PO
     Route: 048
     Dates: start: 20060209, end: 20060510
  2. MOMETASONE FUROATE [Suspect]
     Indication: CHRONIC OBSTRUCTIVE PULMONARY DISEASE
     Dosage: 220 MCG  BID PO
     Route: 048
     Dates: start: 20060209, end: 20060510
  3. FORMOTEROL FUMARATE [Concomitant]
  4. LORATADINE [Concomitant]
  5. PREDNISONE TAB [Concomitant]
  6. SODIUM CHLORIDE [Concomitant]
  7. TAMSULOSIN HCL [Concomitant]
  8. TERAZOSIN HCL [Concomitant]

REACTIONS (1)
  - URINARY INCONTINENCE [None]
